FAERS Safety Report 5476349-0 (Version None)
Quarter: 2007Q4

REPORT INFORMATION
  Report Type: 
  Country: None (occurrence: None)
  Receive Date: 20071003
  Receipt Date: 20070813
  Transmission Date: 20080405
  Serious: Yes (Other)
  Sender: FDA-Public Use
  Company Number: US-PFIZER INC-2007068578

PATIENT
  Sex: Female
  Weight: 49.9 kg

DRUGS (4)
  1. CHANTIX [Suspect]
     Indication: SMOKING CESSATION THERAPY
  2. LANOXIN [Concomitant]
  3. VITAMIN D [Concomitant]
  4. CALCIUM [Concomitant]

REACTIONS (4)
  - FEELING ABNORMAL [None]
  - FORMICATION [None]
  - HEART RATE INCREASED [None]
  - MIGRAINE [None]
